FAERS Safety Report 24129830 (Version 1)
Quarter: 2024Q3

REPORT INFORMATION
  Report Type: Spontaneous
  Country: BR (occurrence: BR)
  Receive Date: 20240724
  Receipt Date: 20240724
  Transmission Date: 20241017
  Serious: No
  Sender: Waylis
  Company Number: BR-WT-2024-AMR-077081

PATIENT
  Age: 40 Year
  Sex: Female

DRUGS (1)
  1. AVODART [Suspect]
     Active Substance: DUTASTERIDE
     Dosage: 0.5 MG
     Route: 065

REACTIONS (1)
  - Product prescribing issue [Unknown]
